FAERS Safety Report 9700415 (Version 1)
Quarter: 2013Q4

REPORT INFORMATION
  Report Type: Spontaneous
  Country: US (occurrence: None)
  Receive Date: 20131120
  Receipt Date: 20131120
  Transmission Date: 20140711
  Serious: Yes (Other)
  Sender: FDA-Public Use
  Company Number: None

PATIENT
  Age: 23 Year
  Sex: Female
  Weight: 108.6 kg

DRUGS (7)
  1. BACLOFEN 10 MG TABLETS [Suspect]
     Indication: BACK PAIN
     Route: 048
     Dates: start: 20130911
  2. CLONAZEPAM [Concomitant]
  3. MELOXICAM [Concomitant]
  4. MIRALAX [Concomitant]
  5. TIGER BALM [Concomitant]
  6. ORTHO TRI-CYCLEN LO [Concomitant]
  7. PRENAPLUS [Concomitant]

REACTIONS (1)
  - Anorgasmia [None]
